FAERS Safety Report 6435456-6 (Version None)
Quarter: 2009Q4

REPORT INFORMATION
  Report Type: 
  Country: None (occurrence: None)
  Receive Date: 20091106
  Receipt Date: 20091023
  Transmission Date: 20100525
  Serious: Yes (Hospitalization)
  Sender: FDA-Public Use
  Company Number: DSJ-2009-12889

PATIENT
  Age: 64 Year
  Sex: Female
  Weight: 51.6 kg

DRUGS (9)
  1. OLMESARTAN MEDOXOMIL [Suspect]
     Indication: HYPERTENSION
     Dosage: 20 MG (20 MG, 1 IN 1 D), PER ORAL
     Route: 048
     Dates: start: 20070817, end: 20071011
  2. GLUCOBAY [Suspect]
     Dosage: 300 MG (100 MG, 3 IN 1 D), PER ORAL
     Route: 048
     Dates: start: 20070622, end: 20071011
  3. MELBIN (METFORMIN HYDROCHLORIDE) (TABLET) (METFORMIN HYDROCHLORIDE) [Suspect]
     Dosage: 750 MG (250 MG, 3 IN 1 D), PER ORAL; 500 MG (250 MG, 2 IN 1 D), PER ORAL
     Route: 048
     Dates: start: 20070817, end: 20070830
  4. MELBIN (METFORMIN HYDROCHLORIDE) (TABLET) (METFORMIN HYDROCHLORIDE) [Suspect]
     Dosage: 750 MG (250 MG, 3 IN 1 D), PER ORAL; 500 MG (250 MG, 2 IN 1 D), PER ORAL
     Route: 048
     Dates: start: 20070831, end: 20070929
  5. AMARYL [Concomitant]
  6. BASEN (VOGLIBOSE) (TABLET) (VOGLIBOSE) [Concomitant]
  7. WARFARIN SODIUM [Concomitant]
  8. NORVASC [Concomitant]
  9. CRESTOR (ROSUVASTATIN CALCIUM) (TABLET) (ROSUVASTATIN CALCIUM) [Concomitant]

REACTIONS (2)
  - HEPATIC FUNCTION ABNORMAL [None]
  - LIVER DISORDER [None]
